FAERS Safety Report 7987177-6 (Version None)
Quarter: 2011Q4

REPORT INFORMATION
  Report Type: 
  Country: None (occurrence: None)
  Receive Date: 20111216
  Receipt Date: 20111005
  Transmission Date: 20120403
  Serious: Yes (Other)
  Sender: FDA-Public Use
  Company Number: US-BRISTOL-MYERS SQUIBB COMPANY-16134736

PATIENT
  Age: 46 Year
  Sex: Male

DRUGS (3)
  1. STRATTERA [Concomitant]
  2. REMERON [Concomitant]
  3. ABILIFY [Suspect]
     Dosage: FOR 10 MONTHS

REACTIONS (1)
  - TARDIVE DYSKINESIA [None]
